FAERS Safety Report 7992934-6 (Version None)
Quarter: 2011Q4

REPORT INFORMATION
  Report Type: 
  Country: None (occurrence: None)
  Receive Date: 20111219
  Receipt Date: 20110616
  Transmission Date: 20120403
  Serious: No
  Sender: FDA-Public Use
  Company Number: US-ASTRAZENECA-2011SE36828

PATIENT
  Age: 86 Year
  Sex: Female

DRUGS (5)
  1. THYROID TAB [Concomitant]
  2. CRESTOR [Suspect]
     Indication: BLOOD CHOLESTEROL INCREASED
     Route: 048
     Dates: start: 20110501
  3. LISINOPRIL AND HYDROCHLOROTHIAZIDE [Concomitant]
     Indication: HYPERTENSION
  4. ASPIRIN [Concomitant]
  5. NORTRIPTYLINE HCL [Concomitant]
     Indication: DEPRESSION

REACTIONS (1)
  - PHLEBITIS SUPERFICIAL [None]
